FAERS Safety Report 11922439 (Version 1)
Quarter: 2016Q1

REPORT INFORMATION
  Report Type: Spontaneous
  Country: FR (occurrence: FR)
  Receive Date: 20160115
  Receipt Date: 20160115
  Transmission Date: 20160526
  Serious: Yes (Other)
  Sender: FDA-Public Use
  Company Number: FR-SA-2016SA003547

PATIENT
  Age: 27 Year
  Sex: Male

DRUGS (5)
  1. TACROLIMUS. [Suspect]
     Active Substance: TACROLIMUS
     Indication: IMMUNOSUPPRESSION
     Dosage: BETWEEN 5 AND 10 NG/ML
     Route: 065
     Dates: start: 201108
  2. ANTI-THYMOCYTE GLOBULIN (RABBIT)/RABBIT ANTI-HUMAN THYMOCYTE IMMUNOGLOBULIN [Suspect]
     Active Substance: LAPINE T-LYMPHOCYTE IMMUNE GLOBULIN
     Indication: IMMUNOSUPPRESSION
     Route: 065
  3. MYCOPHENOLATE MOFETIL. [Suspect]
     Active Substance: MYCOPHENOLATE MOFETIL
     Indication: IMMUNOSUPPRESSION
     Route: 065
  4. CAMPATH [Suspect]
     Active Substance: ALEMTUZUMAB
     Indication: TRANSPLANT REJECTION
     Route: 065
  5. TACROLIMUS. [Suspect]
     Active Substance: TACROLIMUS
     Indication: IMMUNOSUPPRESSION
     Dosage: BETWEEN 5 AND 10 NG/ML
     Route: 065

REACTIONS (7)
  - B-cell lymphoma [None]
  - Off label use [Unknown]
  - Smooth muscle cell neoplasm [Unknown]
  - Hepatitis infectious mononucleosis [Unknown]
  - Transplant rejection [None]
  - Epstein-Barr virus associated lymphoma [Unknown]
  - Mouth ulceration [None]

NARRATIVE: CASE EVENT DATE: 201004
